FAERS Safety Report 5131183-6 (Version None)
Quarter: 2006Q4

REPORT INFORMATION
  Report Type: 
  Country: None (occurrence: None)
  Receive Date: 20061020
  Receipt Date: 20060824
  Transmission Date: 20070319
  Serious: Yes (Other)
  Sender: FDA-Public Use
  Company Number: PHEH2006US10946

PATIENT
  Age: 65 Year
  Sex: Female

DRUGS (1)
  1. AREDIA [Suspect]
     Indication: MULTIPLE MYELOMA
     Dosage: 90 MG, QMO
     Dates: start: 20010101

REACTIONS (20)
  - BONE DISORDER [None]
  - BONE OPERATION [None]
  - DENTAL IMPLANTATION [None]
  - ENDODONTIC PROCEDURE [None]
  - ERYTHEMA [None]
  - GINGIVAL INFECTION [None]
  - HYPOAESTHESIA ORAL [None]
  - IMPAIRED HEALING [None]
  - ORAL INTAKE REDUCED [None]
  - ORAL SOFT TISSUE DISORDER [None]
  - OSTEOMYELITIS [None]
  - OSTEONECROSIS [None]
  - PAIN IN JAW [None]
  - SOFT TISSUE INFECTION [None]
  - SWELLING [None]
  - TOOTH DEPOSIT [None]
  - TOOTH DISORDER [None]
  - TOOTH LOSS [None]
  - WOUND DEBRIDEMENT [None]
  - X-RAY ABNORMAL [None]
